FAERS Safety Report 16334920 (Version 1)
Quarter: 2019Q2

REPORT INFORMATION
  Report Type: Spontaneous
  Country: IT (occurrence: IT)
  Receive Date: 20190520
  Receipt Date: 20190520
  Transmission Date: 20190711
  Serious: Yes (Death, Life-Threatening, Hospitalization, Other)
  Sender: FDA-Public Use
  Company Number: PHHY2019IT115077

PATIENT
  Age: 57 Year
  Sex: Male

DRUGS (8)
  1. RANITIDINE. [Concomitant]
     Active Substance: RANITIDINE
     Indication: PRODUCT USED FOR UNKNOWN INDICATION
     Dosage: 300 MG, QD
     Route: 048
  2. METHYLPREDNISOLONE. [Suspect]
     Active Substance: METHYLPREDNISOLONE
     Indication: PRODUCT USED FOR UNKNOWN INDICATION
     Dosage: 8 MG, QD
     Route: 048
  3. PREDNISONE. [Suspect]
     Active Substance: PREDNISONE
     Indication: DERMATITIS EXFOLIATIVE GENERALISED
     Dosage: 25 MG, QD
     Route: 065
  4. ALLOPURINOL. [Suspect]
     Active Substance: ALLOPURINOL
     Indication: HYPERURICAEMIA
     Dosage: 150 MG, QD
     Route: 065
  5. WARFARIN [Concomitant]
     Active Substance: WARFARIN
     Indication: PRODUCT USED FOR UNKNOWN INDICATION
     Route: 048
  6. FUROSEMIDE. [Concomitant]
     Active Substance: FUROSEMIDE
     Indication: PRODUCT USED FOR UNKNOWN INDICATION
     Dosage: 25 MG, BID
     Route: 048
  7. BISOPROLOL [Concomitant]
     Active Substance: BISOPROLOL
     Indication: PRODUCT USED FOR UNKNOWN INDICATION
     Dosage: 5 MG, BID
     Route: 048
  8. PREDNISONE. [Suspect]
     Active Substance: PREDNISONE
     Indication: GENERALISED OEDEMA

REACTIONS (20)
  - Respiratory disorder [Fatal]
  - Pyrexia [Recovering/Resolving]
  - Lymphadenopathy [Recovering/Resolving]
  - Endocarditis [Recovering/Resolving]
  - Face oedema [Recovering/Resolving]
  - Generalised oedema [Recovering/Resolving]
  - Pneumonia [Recovering/Resolving]
  - Conjunctivitis [Recovering/Resolving]
  - Nail dystrophy [Recovering/Resolving]
  - Muscular weakness [Recovering/Resolving]
  - Confusional state [Recovering/Resolving]
  - Dyspnoea [Unknown]
  - Drug reaction with eosinophilia and systemic symptoms [Recovering/Resolving]
  - Productive cough [Unknown]
  - Rash [Unknown]
  - Cardiac arrest [Recovering/Resolving]
  - Oral herpes [Recovering/Resolving]
  - Nasal herpes [Recovering/Resolving]
  - Dermatitis exfoliative generalised [Recovering/Resolving]
  - Staphylococcal infection [Recovering/Resolving]
